FAERS Safety Report 17288003 (Version 1)
Quarter: 2020Q1

REPORT INFORMATION
  Report Type: Spontaneous
  Country: US (occurrence: US)
  Receive Date: 20200120
  Receipt Date: 20200120
  Transmission Date: 20200409
  Serious: Yes (Other)
  Sender: FDA-Public Use
  Company Number: US-AMGEN-USASP2020007252

PATIENT
  Age: 43 Year
  Sex: Male

DRUGS (3)
  1. PANITUMUMAB [Suspect]
     Active Substance: PANITUMUMAB
     Indication: PENILE SQUAMOUS CELL CARCINOMA
     Dosage: 6 MILLIGRAM/KILOGRAM, Q3WK
     Route: 042
  2. CISPLATIN. [Concomitant]
     Active Substance: CISPLATIN
     Indication: PENILE SQUAMOUS CELL CARCINOMA
     Dosage: 25 MILLIGRAM/SQ. METER, CYCLICAL
     Route: 042
  3. PANITUMUMAB [Suspect]
     Active Substance: PANITUMUMAB
     Dosage: 9 MILLIGRAM/KILOGRAM, Q3WK
     Route: 042

REACTIONS (3)
  - EGFR gene mutation [Unknown]
  - Penile squamous cell carcinoma [Unknown]
  - Off label use [Unknown]
